FAERS Safety Report 17617136 (Version 1)
Quarter: 2020Q2

REPORT INFORMATION
  Report Type: Spontaneous
  Country: US (occurrence: US)
  Receive Date: 20200402
  Receipt Date: 20200402
  Transmission Date: 20200713
  Serious: No
  Sender: FDA-Public Use
  Company Number: US-SA-2020SA078748

PATIENT
  Age: 62 Year
  Sex: Female
  Weight: 93.88 kg

DRUGS (2)
  1. AUBAGIO [Suspect]
     Active Substance: TERIFLUNOMIDE
     Indication: MULTIPLE SCLEROSIS
     Dosage: 14 MG, QD
     Route: 048
     Dates: start: 20181101
  2. ADVIL [IBUPROFEN] [Concomitant]
     Active Substance: IBUPROFEN

REACTIONS (3)
  - Depression [Unknown]
  - Depressed mood [Unknown]
  - Decreased interest [Unknown]

NARRATIVE: CASE EVENT DATE: 2020
